FAERS Safety Report 24367972 (Version 1)
Quarter: 2024Q3

REPORT INFORMATION
  Report Type: Spontaneous
  Country: AU (occurrence: AU)
  Receive Date: 20240926
  Receipt Date: 20240926
  Transmission Date: 20241017
  Serious: Yes (Other)
  Sender: PFIZER
  Company Number: AU-PFIZER INC-PV202400124491

PATIENT
  Age: 61 Year
  Sex: Female

DRUGS (7)
  1. FUROSEMIDE [Suspect]
     Active Substance: FUROSEMIDE
     Indication: Transfusion reaction
     Dosage: 60 MG
     Route: 042
     Dates: start: 19841026
  2. VINCRISTINE SULFATE [Suspect]
     Active Substance: VINCRISTINE SULFATE
     Indication: Lymphoma
     Dosage: 2 MG
     Route: 042
     Dates: start: 19841026
  3. MEZLOCILLIN SODIUM [Suspect]
     Active Substance: MEZLOCILLIN SODIUM
     Indication: Prophylaxis
     Dosage: 6 G
     Route: 042
     Dates: start: 19841023, end: 19841029
  4. NEBCIN [Suspect]
     Active Substance: TOBRAMYCIN SULFATE
     Indication: Prophylaxis
     Dosage: 160 MG
     Route: 042
     Dates: start: 19841023
  5. NIZORAL [Suspect]
     Active Substance: KETOCONAZOLE
     Indication: Prophylaxis
     Dosage: 200 MG
     Route: 048
     Dates: start: 19841024
  6. CLOXACILLIN SODIUM [Suspect]
     Active Substance: CLOXACILLIN SODIUM
     Indication: Prophylaxis
     Dosage: 12 G
     Route: 042
     Dates: start: 19841023, end: 19841029
  7. CHLORHEXIDINE [Concomitant]
     Active Substance: CHLORHEXIDINE
     Dosage: UNK
     Route: 002
     Dates: start: 19841023

REACTIONS (3)
  - Dermatitis bullous [Recovered/Resolved]
  - Periorbital oedema [Recovered/Resolved]
  - Off label use [Unknown]

NARRATIVE: CASE EVENT DATE: 19841026
